FAERS Safety Report 5765625-X (Version None)
Quarter: 2008Q2

REPORT INFORMATION
  Report Type: 
  Country: None (occurrence: None)
  Receive Date: 20080606
  Receipt Date: 20080606
  Transmission Date: 20081010
  Serious: Yes (Other)
  Sender: FDA-Public Use
  Company Number: None

PATIENT
  Age: 32 Year
  Sex: Female
  Weight: 54.4316 kg

DRUGS (1)
  1. DIDREX [Suspect]
     Indication: HYPERPHAGIA
     Dosage: ONE DAILY

REACTIONS (4)
  - EYELID DISORDER [None]
  - EYELID RETRACTION [None]
  - INTENTIONAL SELF-INJURY [None]
  - SKIN DISORDER [None]
